FAERS Safety Report 9251075 (Version 3)
Quarter: 2013Q3

REPORT INFORMATION
  Report Type: Spontaneous
  Country: US (occurrence: US)
  Receive Date: 20130424
  Receipt Date: 20130927
  Transmission Date: 20140515
  Serious: Yes (Hospitalization, Disabling)
  Sender: FDA-Public Use
  Company Number: US-ASTRAZENECA-2013SE27282

PATIENT
  Age: 50 Year
  Sex: Male
  Weight: 81.6 kg

DRUGS (12)
  1. NEXIUM [Suspect]
     Indication: GASTROOESOPHAGEAL REFLUX DISEASE
     Route: 048
     Dates: start: 20050415
  2. NEXIUM [Suspect]
     Indication: GASTROOESOPHAGEAL REFLUX DISEASE
     Route: 048
     Dates: end: 201101
  3. PROTONIX [Concomitant]
     Indication: GASTROOESOPHAGEAL REFLUX DISEASE
  4. ZANTAC OTC [Concomitant]
     Dosage: ONCE A DAY LESS THAN A MONTH
  5. TAGAMET OTC [Concomitant]
     Dosage: ONCE A DAY LESS THAN A MONTH
  6. CRESTOR [Concomitant]
     Indication: BLOOD CHOLESTEROL INCREASED
  7. VALIUM [Concomitant]
     Indication: ANXIETY
  8. FENOFIBRATE [Concomitant]
     Indication: BLOOD CHOLESTEROL ABNORMAL
  9. PERCOSET [Concomitant]
     Indication: PAIN
  10. LORATIDINE [Concomitant]
     Indication: HYPERSENSITIVITY
  11. MULTIVITAMIN [Concomitant]
  12. FISH OIL [Concomitant]

REACTIONS (9)
  - Fall [Unknown]
  - Upper limb fracture [Unknown]
  - Musculoskeletal discomfort [Unknown]
  - Osteoporosis [Unknown]
  - Bone disorder [Unknown]
  - Skeletal injury [Unknown]
  - Pain [Unknown]
  - Ankle fracture [Unknown]
  - Depression [Unknown]
